FAERS Safety Report 9336544 (Version 1)
Quarter: 2013Q2

REPORT INFORMATION
  Report Type: Spontaneous
  Country: US (occurrence: US)
  Receive Date: 20130607
  Receipt Date: 20130607
  Transmission Date: 20140414
  Serious: No
  Sender: FDA-Public Use
  Company Number: US-PFIZER INC-2013170323

PATIENT
  Sex: Male

DRUGS (1)
  1. MISOPROSTOL [Suspect]
     Dosage: UNK
     Dates: start: 20130527, end: 2013

REACTIONS (3)
  - Drug ineffective [Unknown]
  - Rebound effect [Unknown]
  - Dyspnoea [Unknown]
